FAERS Safety Report 11972341 (Version 2)
Quarter: 2016Q2

REPORT INFORMATION
  Report Type: Spontaneous
  Country: US (occurrence: US)
  Receive Date: 20160128
  Receipt Date: 20160404
  Transmission Date: 20160815
  Serious: Yes (Hospitalization)
  Sender: FDA-Public Use
  Company Number: US-BAYER-2016-015520

PATIENT
  Age: 19 Year
  Sex: Female

DRUGS (10)
  1. DIFLUCAN [Concomitant]
     Active Substance: FLUCONAZOLE
  2. MIRENA [Suspect]
     Active Substance: LEVONORGESTREL
     Indication: CONTRACEPTION
     Dosage: 20 MCG/24HR, CONT
     Route: 015
     Dates: start: 20130114, end: 20140205
  3. MIDOL [CAFFEINE,MEPYRAMINE MALEATE,PARACETAMOL] [Concomitant]
  4. DOXYCYCLINE HYCLATE. [Concomitant]
     Active Substance: DOXYCYCLINE HYCLATE
  5. DRYSOL [Concomitant]
     Active Substance: ALUMINUM CHLORIDE
  6. DARVOCET [Concomitant]
     Active Substance: ACETAMINOPHEN\PROPOXYPHENE HYDROCHLORIDE
  7. DICLOXACILLIN [Concomitant]
     Active Substance: DICLOXACILLIN
  8. ROCEPHIN [Concomitant]
     Active Substance: CEFTRIAXONE SODIUM
  9. PHENERGAN [DIBROMPROPAMIDINE ISETIONATE,PROMETHAZINE HYDROCHLORIDE [Concomitant]
  10. MOTRIN [Concomitant]
     Active Substance: IBUPROFEN

REACTIONS (6)
  - Pelvic inflammatory disease [None]
  - Uterine perforation [None]
  - Device issue [None]
  - Abdominal pain [None]
  - Pelvic pain [None]
  - Genital haemorrhage [None]

NARRATIVE: CASE EVENT DATE: 201306
